FAERS Safety Report 5551192-2 (Version None)
Quarter: 2007Q4

REPORT INFORMATION
  Report Type: 
  Country: None (occurrence: None)
  Receive Date: 20071212
  Receipt Date: 20071127
  Transmission Date: 20080405
  Serious: Yes (Hospitalization)
  Sender: FDA-Public Use
  Company Number: US-ROCHE-533680

PATIENT
  Age: 33 Year
  Sex: Female

DRUGS (9)
  1. VALIUM [Suspect]
     Indication: DRUG USE FOR UNKNOWN INDICATION
     Route: 065
     Dates: end: 20071030
  2. KLONOPIN [Suspect]
     Indication: ANXIETY
     Route: 065
     Dates: start: 20071030
  3. COCAINE [Suspect]
     Dosage: REPORTED AS COCAINE ABUSE
     Route: 065
  4. LEXAPRO [Concomitant]
     Indication: DRUG USE FOR UNKNOWN INDICATION
     Dates: end: 20071030
  5. THORAZINE [Concomitant]
     Dosage: DOSING: 25 MG THREE TIMES A DAY AND 200 MG AT BEDTIME.
  6. LITHIUM CARBONATE [Concomitant]
  7. CYMBALTA [Concomitant]
  8. MIDRIN [Concomitant]
     Indication: HEADACHE
  9. CHLORAL HYDRATE [Concomitant]
     Dosage: AT BEDTIME

REACTIONS (3)
  - DISTURBANCE IN ATTENTION [None]
  - ROAD TRAFFIC ACCIDENT [None]
  - SOMNOLENCE [None]
